FAERS Safety Report 9862334 (Version 1)
Quarter: 2014Q1

REPORT INFORMATION
  Report Type: Spontaneous
  Country: PT (occurrence: PT)
  Receive Date: 20140203
  Receipt Date: 20140203
  Transmission Date: 20141002
  Serious: Yes (Other)
  Sender: FDA-Public Use
  Company Number: PT-TEVA-458613ISR

PATIENT
  Age: 48 Year
  Sex: Female
  Weight: 63 kg

DRUGS (5)
  1. COPAXONE [Suspect]
     Indication: MULTIPLE SCLEROSIS
     Dosage: 20 MILLIGRAM DAILY;
     Route: 058
     Dates: start: 201208, end: 20140115
  2. VENTILAN-INALADOR [Concomitant]
     Indication: ASTHMA
     Dosage: PRESSURISED INHALATION, SUSPENSION
     Route: 055
  3. SINVASTATINA [Concomitant]
     Indication: DYSLIPIDAEMIA
     Dosage: 20 MILLIGRAM DAILY;
     Route: 048
  4. ARANKELLE [Concomitant]
     Indication: CONTRACEPTION
     Dosage: 1 DOSAGE FORMS DAILY;
     Route: 048
  5. ASPIRINA GR 100MG COMPRIMIDOS GASTRORRESISTENTES [Concomitant]
     Indication: PROPHYLAXIS
     Dosage: GASTRO-RESISTANT TABLET
     Route: 048

REACTIONS (3)
  - Lip oedema [Recovered/Resolved]
  - Hypoaesthesia [Recovered/Resolved]
  - Face oedema [Recovered/Resolved]
